FAERS Safety Report 16149501 (Version 3)
Quarter: 2019Q3

REPORT INFORMATION
  Report Type: Other
  Country: US (occurrence: US)
  Receive Date: 20190402
  Receipt Date: 20190813
  Transmission Date: 20191004
  Serious: Yes (Other)
  Sender: FDA-Public Use
  Company Number: US-ACORDA-ACO_157935_2019

PATIENT
  Sex: Female

DRUGS (2)
  1. AMPYRA [Suspect]
     Active Substance: DALFAMPRIDINE
     Indication: GAIT DISTURBANCE
  2. AMPYRA [Suspect]
     Active Substance: DALFAMPRIDINE
     Indication: MULTIPLE SCLEROSIS
     Dosage: 10 MILLIGRAM, Q 12 HRS
     Route: 048
     Dates: start: 20190315

REACTIONS (12)
  - Cataract [Unknown]
  - Aphasia [Unknown]
  - Sinusitis [Unknown]
  - Disturbance in attention [Unknown]
  - Muscle twitching [Unknown]
  - Gait disturbance [Unknown]
  - Muscular weakness [Unknown]
  - Carpal tunnel syndrome [Unknown]
  - Visual impairment [Unknown]
  - Ligament sprain [Unknown]
  - Central nervous system lesion [Unknown]
  - Headache [Unknown]
